FAERS Safety Report 5308083-1 (Version None)
Quarter: 2007Q2

REPORT INFORMATION
  Report Type: 
  Country: None (occurrence: None)
  Receive Date: 20070426
  Receipt Date: 20070417
  Transmission Date: 20071010
  Serious: Yes (Hospitalization)
  Sender: FDA-Public Use
  Company Number: PHBS2007US07037

PATIENT
  Age: 53 Year
  Sex: Male

DRUGS (4)
  1. PAMIDRONATE DISODIUM [Suspect]
     Indication: HYPERCALCAEMIA
     Dosage: 60 MG/DAY
     Route: 042
  2. FLUID/ELECTROLYTE REPLACEMENT THERAPY [Concomitant]
     Dosage: 25 L/TOTAL
  3. FUROSEMIDE [Concomitant]
     Dosage: 40 MG, UNK
  4. MAGNESIUM SULFATE [Concomitant]

REACTIONS (4)
  - APHASIA [None]
  - BLOOD MAGNESIUM DECREASED [None]
  - HYPOCALCAEMIA [None]
  - NEOLOGISM [None]
